FAERS Safety Report 6193919-5 (Version None)
Quarter: 2009Q2

REPORT INFORMATION
  Report Type: 
  Country: None (occurrence: None)
  Receive Date: 20090518
  Receipt Date: 20090506
  Transmission Date: 20091009
  Serious: Yes (Other)
  Sender: FDA-Public Use
  Company Number: US-PFIZER INC-2009210017

PATIENT
  Sex: Female

DRUGS (6)
  1. PROVERA [Suspect]
     Indication: HORMONE REPLACEMENT THERAPY
     Dosage: 2.5-10MG
     Route: 048
  2. PREMARIN [Suspect]
     Indication: HORMONE REPLACEMENT THERAPY
  3. PREMPRO [Suspect]
     Indication: HORMONE REPLACEMENT THERAPY
     Dosage: UNK
     Dates: start: 19961001, end: 20010401
  4. ATENOLOL [Concomitant]
     Indication: HYPERTENSION
  5. LOPRESSOR [Concomitant]
     Indication: HYPERTENSION
  6. TENORETIC 100 [Concomitant]
     Indication: HYPERTENSION

REACTIONS (1)
  - BREAST CANCER FEMALE [None]
